FAERS Safety Report 7287133-X (Version None)
Quarter: 2011Q1

REPORT INFORMATION
  Report Type: 
  Country: None (occurrence: None)
  Receive Date: 20110211
  Receipt Date: 20110131
  Transmission Date: 20110831
  Serious: Yes (Congenital Anomaly, Other)
  Sender: FDA-Public Use
  Company Number: US-ROCHE-704133

PATIENT
  Sex: Female
  Weight: 1.8 kg

DRUGS (10)
  1. TACROLIMUS [Concomitant]
     Dates: end: 20071231
  2. PREDNISONE [Concomitant]
     Dosage: TAKEN DAILY
  3. AZATHIOPRINE [Concomitant]
     Dosage: TAKEN DAILY
     Dates: start: 20071231, end: 20080723
  4. LOVENOX [Concomitant]
     Dates: start: 20071231
  5. TACROLIMUS [Concomitant]
     Dates: start: 20071231, end: 20080131
  6. TACROLIMUS [Concomitant]
     Dates: start: 20080131, end: 20080714
  7. COUMADIN [Concomitant]
     Dates: end: 20071231
  8. TACROLIMUS [Concomitant]
     Dates: start: 20080714
  9. LABETALOL [Concomitant]
     Indication: HYPERTENSION
  10. MYCOPHENOLATE MOFETIL [Suspect]
     Route: 064
     Dates: start: 20030722, end: 20071231

REACTIONS (2)
  - PREMATURE BABY [None]
  - VENTRICULAR SEPTAL DEFECT [None]
